FAERS Safety Report 10047182 (Version 1)
Quarter: 2014Q1

REPORT INFORMATION
  Report Type: Spontaneous
  Country: US (occurrence: US)
  Receive Date: 20140331
  Receipt Date: 20140331
  Transmission Date: 20141002
  Serious: No
  Sender: FDA-Public Use
  Company Number: US-MYLANLABS-2013S1017230

PATIENT
  Sex: Female

DRUGS (6)
  1. FENTANYL TRANSDERMAL SYSTEM [Suspect]
     Indication: PAIN
     Dosage: Q72H
     Route: 062
  2. TOPAMAX [Concomitant]
     Indication: CONVULSION
     Dosage: TAKEN FOR YEARS
  3. POTASSIUM [Concomitant]
     Dosage: TAKEN FOR YEARS
  4. PROTONIX [Concomitant]
     Route: 048
     Dates: start: 2013
  5. BISOPROLOL [Concomitant]
     Route: 048
     Dates: start: 2013
  6. LASIX [Concomitant]
     Indication: SWELLING
     Dates: start: 2013, end: 2013

REACTIONS (4)
  - Drug ineffective [Not Recovered/Not Resolved]
  - Pain [Not Recovered/Not Resolved]
  - Drug screen negative [Not Recovered/Not Resolved]
  - Local swelling [Not Recovered/Not Resolved]
